FAERS Safety Report 19522174 (Version 2)
Quarter: 2023Q1

REPORT INFORMATION
  Report Type: Report from Study
  Country: TH (occurrence: TH)
  Receive Date: 20210712
  Receipt Date: 20230313
  Transmission Date: 20230418
  Serious: Yes (Death, Hospitalization, Other)
  Sender: FDA-Public Use
  Company Number: TH-JNJFOC-20210629639

PATIENT
  Age: 66 Year
  Sex: Female

DRUGS (2)
  1. BORTEZOMIB [Suspect]
     Active Substance: BORTEZOMIB
     Indication: Plasma cell myeloma
     Dosage: 1.9 MILLIGRAM
     Route: 058
     Dates: start: 20210529
  2. DARATUMUMAB [Suspect]
     Active Substance: DARATUMUMAB
     Indication: Plasma cell myeloma
     Dosage: 960 MILLIGRAM
     Route: 042
     Dates: start: 20210529

REACTIONS (3)
  - Pneumonia [Fatal]
  - COVID-19 [Unknown]
  - Plasma cell myeloma [Unknown]
